FAERS Safety Report 7820332-4 (Version None)
Quarter: 2011Q4

REPORT INFORMATION
  Report Type: 
  Country: None (occurrence: None)
  Receive Date: 20111018
  Receipt Date: 20111013
  Transmission Date: 20120403
  Serious: Yes (Other)
  Sender: FDA-Public Use
  Company Number: US-AMGEN-US183108

PATIENT
  Age: 43 Year
  Sex: Female
  Weight: 77.2 kg

DRUGS (19)
  1. CALCIUM WITH VITAMIN D [Concomitant]
     Indication: PREGNANCY
     Dosage: UNK UNK, QD
     Route: 048
     Dates: start: 20051228, end: 20060418
  2. INFLUENZA VACCINE [Concomitant]
     Indication: ANTIVIRAL PROPHYLAXIS
     Dosage: UNK
     Route: 051
     Dates: start: 20051107, end: 20051107
  3. CALCIUM CARBONATE [Concomitant]
     Dosage: UNK
     Route: 048
     Dates: start: 20060329, end: 20060330
  4. RANITIDINE [Concomitant]
     Indication: DYSPEPSIA
     Dosage: 100 MG, QD
     Route: 048
     Dates: start: 20050815, end: 20060418
  5. MULTI-VITAMINS [Concomitant]
     Indication: PREGNANCY
     Dosage: UNK UNK, QD
     Route: 048
     Dates: start: 20050815, end: 20060131
  6. AMPICILLIN SODIUM [Concomitant]
     Indication: URINARY TRACT INFECTION
     Dosage: UNK UNK, UNK
     Route: 048
     Dates: start: 20051024, end: 20051031
  7. FISH OIL [Concomitant]
     Indication: PREGNANCY
     Dosage: UNK UNK, QD
     Route: 048
     Dates: start: 20051206, end: 20060418
  8. PENICILLIN [Concomitant]
     Indication: PAIN
     Dosage: 500 MG, QID
     Route: 048
     Dates: start: 20060125, end: 20060130
  9. BENADRYL [Concomitant]
     Indication: PRURITUS
     Dosage: UNK
     Route: 061
     Dates: start: 20060404, end: 20060418
  10. NAPROXEN [Concomitant]
     Indication: RHEUMATOID ARTHRITIS
     Dosage: 500 MG, QD
     Route: 048
     Dates: start: 20050815, end: 20051218
  11. ALEVE [Concomitant]
     Indication: RHEUMATOID ARTHRITIS
     Dosage: 20 MG, BID
     Route: 048
     Dates: start: 20051225, end: 20060103
  12. MULTI-VITAMINS [Concomitant]
     Dosage: UNK UNK, QD
     Dates: start: 20060201, end: 20060418
  13. PREDNISONE [Concomitant]
     Indication: RHEUMATOID ARTHRITIS
     Dosage: UNK
     Route: 048
     Dates: start: 20050816, end: 20060404
  14. ASPIRIN [Concomitant]
     Indication: PROPHYLAXIS OF ABORTION
     Dosage: 81 MG, QD
     Route: 048
     Dates: start: 20050815, end: 20060418
  15. TYLENOL-500 [Concomitant]
     Indication: OROPHARYNGEAL PAIN
     Dosage: UNK UNK, QD
     Route: 048
     Dates: start: 20060224, end: 20060331
  16. ETANERCEPT [Suspect]
     Indication: RHEUMATOID ARTHRITIS
     Dosage: 25 MG, 2 TIMES/WK
     Route: 051
     Dates: start: 20050815, end: 20060418
  17. LOPERAMIDE HCL [Concomitant]
     Indication: DIARRHOEA
     Dosage: 4 MG, UNK
     Dates: start: 20051118, end: 20051119
  18. ASCORBIC ACID [Concomitant]
     Indication: FATIGUE
     Dosage: 500 MG, QD
     Route: 048
     Dates: start: 20050815, end: 20060418
  19. IRON [Concomitant]
     Indication: ANAEMIA
     Dosage: 65 MG, QD
     Route: 048
     Dates: start: 20050815, end: 20060418

REACTIONS (1)
  - PREMATURE DELIVERY [None]
